FAERS Safety Report 7450805-8 (Version None)
Quarter: 2011Q2

REPORT INFORMATION
  Report Type: 
  Country: None (occurrence: None)
  Receive Date: 20110502
  Receipt Date: 20110427
  Transmission Date: 20111010
  Serious: Yes (Other)
  Sender: FDA-Public Use
  Company Number: FR-PFIZER INC-2011090500

PATIENT
  Age: 37 Year
  Sex: Female

DRUGS (3)
  1. FLUTICASONE [Concomitant]
  2. CEFPODOXIME PROXETIL [Suspect]
     Dosage: UNK
     Route: 048
     Dates: start: 20101101, end: 20101101
  3. SERETIDE [Concomitant]

REACTIONS (1)
  - PANCREATITIS ACUTE [None]
